FAERS Safety Report 17817880 (Version 15)
Quarter: 2021Q3

REPORT INFORMATION
  Report Type: Report from Study
  Country: US (occurrence: US)
  Receive Date: 20200522
  Receipt Date: 20210927
  Transmission Date: 20211014
  Serious: Yes (Hospitalization, Other)
  Sender: FDA-Public Use
  Company Number: US-SHIRE-US202016914

PATIENT
  Sex: Female
  Weight: 77 kg

DRUGS (37)
  1. HEPARIN [Concomitant]
     Active Substance: HEPARIN SODIUM
     Route: 065
  2. WARFARIN [Concomitant]
     Active Substance: WARFARIN
     Route: 065
  3. JANTOVEN [Concomitant]
     Active Substance: WARFARIN SODIUM
     Route: 065
  4. CYCLOBENZAPRINE. [Concomitant]
     Active Substance: CYCLOBENZAPRINE
     Route: 065
  5. LANSOPRAZOLE. [Concomitant]
     Active Substance: LANSOPRAZOLE
     Route: 065
  6. TRELEGY ELLIPTA [Concomitant]
     Active Substance: FLUTICASONE FUROATE\UMECLIDINIUM BROMIDE\VILANTEROL TRIFENATATE
     Route: 065
  7. ALBUTEROL [SALBUTAMOL] [Concomitant]
     Active Substance: ALBUTEROL
     Route: 065
  8. PROMETHAZINE [Concomitant]
     Active Substance: PROMETHAZINE HYDROCHLORIDE
     Route: 065
  9. TELMISARTAN. [Concomitant]
     Active Substance: TELMISARTAN
     Route: 065
  10. TRELEGY ELLIPTA [Concomitant]
     Active Substance: FLUTICASONE FUROATE\UMECLIDINIUM BROMIDE\VILANTEROL TRIFENATATE
     Route: 065
  11. HUMAN NORMAL IMMUNOGLOBULIN; LIQUID [Suspect]
     Active Substance: HUMAN IMMUNOGLOBULIN G
     Dosage: 22.5 GRAM Q2WEEKS
     Route: 042
     Dates: start: 20111226
  12. SODIUM CHLORIDE. [Concomitant]
     Active Substance: SODIUM CHLORIDE
     Route: 065
  13. MELOXICAM. [Concomitant]
     Active Substance: MELOXICAM
     Route: 065
  14. PLAQUENIL [Concomitant]
     Active Substance: HYDROXYCHLOROQUINE SULFATE
     Route: 065
  15. BUDESONIDE. [Concomitant]
     Active Substance: BUDESONIDE
     Route: 065
  16. DULOXETINE. [Concomitant]
     Active Substance: DULOXETINE
     Route: 065
  17. ALBUTEROL SULFATE. [Concomitant]
     Active Substance: ALBUTEROL SULFATE
     Route: 065
  18. IPRATROPIUM [Concomitant]
     Active Substance: IPRATROPIUM
     Route: 065
  19. DIPHENHYDRAMINE. [Concomitant]
     Active Substance: DIPHENHYDRAMINE
     Route: 065
  20. EPINEPHRINE. [Concomitant]
     Active Substance: EPINEPHRINE
     Route: 065
  21. OXYGEN. [Concomitant]
     Active Substance: OXYGEN
     Route: 065
  22. MORPHINE [Concomitant]
     Active Substance: MORPHINE
     Route: 065
  23. TRAZODONE [Concomitant]
     Active Substance: TRAZODONE HYDROCHLORIDE
     Route: 065
  24. MIRALAX [Concomitant]
     Active Substance: POLYETHYLENE GLYCOL 3350
     Route: 065
  25. LINZESS [Concomitant]
     Active Substance: LINACLOTIDE
     Route: 065
  26. IPRATROPIUM BROMIDE. [Concomitant]
     Active Substance: IPRATROPIUM BROMIDE
     Route: 065
  27. FENTANYL. [Concomitant]
     Active Substance: FENTANYL
     Route: 065
  28. NARCAN [Concomitant]
     Active Substance: NALOXONE HYDROCHLORIDE
     Route: 065
  29. VITAMIN D2 [Concomitant]
     Active Substance: ERGOCALCIFEROL
     Route: 065
  30. TIZANIDINE. [Concomitant]
     Active Substance: TIZANIDINE
     Route: 065
  31. PULMICORT TURBUHALER [Concomitant]
     Active Substance: BUDESONIDE
     Route: 065
  32. HUMAN NORMAL IMMUNOGLOBULIN; LIQUID [Suspect]
     Active Substance: HUMAN IMMUNOGLOBULIN G
     Dosage: 22.5 GRAM, Q2WEEKS
     Route: 042
     Dates: start: 20111206
  33. LACTULOSE. [Concomitant]
     Active Substance: LACTULOSE
     Route: 065
  34. ZOFRAN [Concomitant]
     Active Substance: ONDANSETRON HYDROCHLORIDE
     Route: 065
  35. HUMAN NORMAL IMMUNOGLOBULIN; LIQUID [Suspect]
     Active Substance: HUMAN IMMUNOGLOBULIN G
     Indication: IMMUNODEFICIENCY COMMON VARIABLE
     Dosage: 22.5 GRAM, Q2WEEKS
     Route: 042
     Dates: start: 20111130
  36. NORMAL SALINE [Concomitant]
     Active Substance: SODIUM CHLORIDE
     Route: 065
  37. ACETAMINOPHEN. [Concomitant]
     Active Substance: ACETAMINOPHEN
     Route: 065

REACTIONS (10)
  - Deep vein thrombosis [Unknown]
  - Arthropod bite [Unknown]
  - Peripheral swelling [Unknown]
  - Nasal abscess [Unknown]
  - Pain [Unknown]
  - Bacteraemia [Unknown]
  - Omphalitis [Unknown]
  - Elbow operation [Unknown]
  - Pneumonia [Unknown]
  - Fatigue [Unknown]
